FAERS Safety Report 8807295 (Version 1)
Quarter: 2012Q4

REPORT INFORMATION
  Report Type: Report from Study
  Country: CA (occurrence: CA)
  Receive Date: 20120925
  Receipt Date: 20120925
  Transmission Date: 20130627
  Serious: Yes (Other)
  Sender: FDA-Public Use
  Company Number: CA-ABBOTT-12P-028-0980815-00

PATIENT
  Sex: Female
  Weight: 61.29 kg

DRUGS (3)
  1. HUMIRA [Suspect]
     Indication: CROHN^S DISEASE
     Route: 058
     Dates: start: 20080617, end: 2010
  2. PENTASA [Concomitant]
     Indication: CROHN^S DISEASE
     Route: 048
     Dates: end: 201207
  3. CIPROFLOXACIN [Concomitant]
     Indication: PRODUCT USED FOR UNKNOWN INDICATION
     Route: 048

REACTIONS (4)
  - Gastrointestinal disorder [Recovered/Resolved]
  - Gastrointestinal infection [Recovered/Resolved]
  - Malaise [Recovered/Resolved]
  - Weight decreased [Unknown]
